FAERS Safety Report 14756700 (Version 1)
Quarter: 2018Q2

REPORT INFORMATION
  Report Type: Spontaneous
  Country: US (occurrence: US)
  Receive Date: 20180413
  Receipt Date: 20180413
  Transmission Date: 20180711
  Serious: No
  Sender: FDA-Public Use
  Company Number: US-009507513-1803USA011704

PATIENT
  Age: 16 Year
  Sex: Female
  Weight: 52.61 kg

DRUGS (2)
  1. ZOLOFT [Concomitant]
     Active Substance: SERTRALINE HYDROCHLORIDE
     Dosage: UNK
  2. NUVARING [Suspect]
     Active Substance: ETHINYL ESTRADIOL\ETONOGESTREL
     Indication: MENSTRUATION NORMAL
     Dosage: 1 RING 3 WEEKS INSIDE THEN 1 WEEK OUT
     Route: 067
     Dates: start: 201801

REACTIONS (3)
  - Product use in unapproved indication [Unknown]
  - Muscle spasms [Unknown]
  - Metrorrhagia [Unknown]

NARRATIVE: CASE EVENT DATE: 201801
